FAERS Safety Report 4462642-7 (Version None)
Quarter: 2004Q3

REPORT INFORMATION
  Report Type: 
  Country: None (occurrence: None)
  Receive Date: 20040929
  Receipt Date: 20040907
  Transmission Date: 20050211
  Serious: Yes (Hospitalization)
  Sender: FDA-Public Use
  Company Number: F01200402735

PATIENT
  Age: 65 Year
  Sex: Male
  Weight: 64.9 kg

DRUGS (14)
  1. COUMADIN [Suspect]
     Indication: PULMONARY EMBOLISM
     Dosage: ORAL
     Route: 048
     Dates: start: 20040316
  2. HEPARIN [Concomitant]
  3. PARACETAMOL [Concomitant]
  4. CALCIUM WITH VIT B 1 [Concomitant]
  5. FAMOTIDINE [Concomitant]
  6. ADVAIR DISKUS 100/50 [Concomitant]
  7. VITAMIN E [Concomitant]
  8. ALENDRONATE SODIUM [Concomitant]
  9. ALBUTEROL [Concomitant]
  10. ACETYLSALICYLIC ACID [Concomitant]
  11. RANITIDINE HYDROCHLORIDE [Concomitant]
  12. FEXOFENADINE HYDROCHLORIDE [Concomitant]
  13. PETHIDINE HYDROCHLORIDE [Concomitant]
  14. MIDAZOLAM HYDROCHLORIDE [Concomitant]

REACTIONS (6)
  - ACTIVATED PARTIAL THROMBOPLASTIN TIME PROLONGED [None]
  - COLONIC POLYP [None]
  - GASTROINTESTINAL OEDEMA [None]
  - HAEMOGLOBIN DECREASED [None]
  - INTERNATIONAL NORMALISED RATIO DECREASED [None]
  - RECTAL HAEMORRHAGE [None]
